FAERS Safety Report 16982579 (Version 1)
Quarter: 2019Q4

REPORT INFORMATION
  Report Type: Spontaneous
  Country: US (occurrence: US)
  Receive Date: 20191101
  Receipt Date: 20191101
  Transmission Date: 20200122
  Serious: Yes (Other)
  Sender: FDA-Public Use
  Company Number: US-CELGENEUS-USA-20191008577

PATIENT
  Age: 75 Year
  Sex: Male
  Weight: 85.81 kg

DRUGS (2)
  1. REVLIMID [Suspect]
     Active Substance: LENALIDOMIDE
     Dosage: 10 MILLIGRAM.
     Route: 048
     Dates: start: 201909, end: 20191022
  2. REVLIMID [Suspect]
     Active Substance: LENALIDOMIDE
     Indication: MYELODYSPLASTIC SYNDROME UNCLASSIFIABLE
     Dosage: 5 MILLIGRAM.
     Route: 048
     Dates: start: 20190806

REACTIONS (1)
  - Transformation to acute myeloid leukaemia [Unknown]

NARRATIVE: CASE EVENT DATE: 20191022
